FAERS Safety Report 7217221-5 (Version None)
Quarter: 2010Q4

REPORT INFORMATION
  Report Type: 
  Country: None (occurrence: None)
  Receive Date: 20101230
  Receipt Date: 20101216
  Transmission Date: 20110411
  Serious: Yes (Life-Threatening)
  Sender: FDA-Public Use
  Company Number: 010722

PATIENT
  Age: 81 Year
  Sex: Female

DRUGS (3)
  1. PLETAL [Suspect]
     Indication: CEREBRAL INFARCTION
     Dosage: ORAL ; 50 MG, BID, ORAL ; 25 MG, BID, ORAL
     Route: 048
     Dates: end: 20100211
  2. PLETAL [Suspect]
     Indication: CEREBRAL INFARCTION
     Dosage: ORAL ; 50 MG, BID, ORAL ; 25 MG, BID, ORAL
     Route: 048
     Dates: start: 20100212, end: 20100607
  3. PLETAL [Suspect]
     Indication: CEREBRAL INFARCTION
     Dosage: ORAL ; 50 MG, BID, ORAL ; 25 MG, BID, ORAL
     Route: 048
     Dates: start: 20100913

REACTIONS (2)
  - CEREBRAL HAEMORRHAGE [None]
  - THROMBOCYTOPENIA [None]
